FAERS Safety Report 18956101 (Version 1)
Quarter: 2021Q1

REPORT INFORMATION
  Report Type: Spontaneous
  Country: US (occurrence: US)
  Receive Date: 20210302
  Receipt Date: 20210302
  Transmission Date: 20210420
  Serious: No
  Sender: FDA-Public Use
  Company Number: US-DRREDDYS-USA/USA/21/0132112

PATIENT
  Age: 66 Year

DRUGS (1)
  1. ZENATANE [Suspect]
     Active Substance: ISOTRETINOIN
     Indication: PRODUCT USED FOR UNKNOWN INDICATION
     Dosage: RMA ISSUE DATE: 3/13/2020 11:51:40 AM, 10/13/2020 11:20:19 AM, 11/9/2020 1:18:16 PM, 12/10/2020 2:50
     Route: 048

REACTIONS (1)
  - Adverse drug reaction [Unknown]
